FAERS Safety Report 20025196 (Version 4)
Quarter: 2022Q1

REPORT INFORMATION
  Report Type: Report from Study
  Country: US (occurrence: US)
  Receive Date: 20211102
  Receipt Date: 20220301
  Transmission Date: 20220423
  Serious: Yes (Hospitalization, Other)
  Sender: FDA-Public Use
  Company Number: US-TAKEDA-2021TUS065998

PATIENT
  Age: 5 Year
  Sex: Male

DRUGS (12)
  1. TEDUGLUTIDE [Suspect]
     Active Substance: TEDUGLUTIDE
     Indication: Short-bowel syndrome
     Dosage: 0.6 MILLIGRAM, QD
     Route: 065
     Dates: start: 20210216
  2. TEDUGLUTIDE [Suspect]
     Active Substance: TEDUGLUTIDE
     Indication: Short-bowel syndrome
     Dosage: 0.6 MILLIGRAM, QD
     Route: 065
     Dates: start: 20210216
  3. TEDUGLUTIDE [Suspect]
     Active Substance: TEDUGLUTIDE
     Indication: Short-bowel syndrome
     Dosage: 0.6 MILLIGRAM, QD
     Route: 065
     Dates: start: 20210216
  4. TEDUGLUTIDE [Suspect]
     Active Substance: TEDUGLUTIDE
     Indication: Short-bowel syndrome
     Dosage: 0.6 MILLIGRAM, QD
     Route: 065
     Dates: start: 20210216
  5. ERYTHROMYCIN [Concomitant]
     Active Substance: ERYTHROMYCIN
     Indication: Movement disorder
     Dosage: 40 MILLIGRAM
     Route: 065
     Dates: start: 20210420
  6. LEVETIRACETAM [Concomitant]
     Active Substance: LEVETIRACETAM
     Indication: Seizure
     Dosage: UNK
     Route: 065
     Dates: start: 20210420
  7. ALCOHOL [Concomitant]
     Active Substance: ALCOHOL
     Indication: Vascular device infection
     Dosage: 0.20 MILLILITER
     Route: 042
     Dates: start: 20210420
  8. ZINC OXIDE [Concomitant]
     Active Substance: ZINC OXIDE
     Indication: Dermatitis diaper
     Dosage: UNK
     Route: 061
     Dates: start: 20210420
  9. ALBUTEROL [Concomitant]
     Active Substance: ALBUTEROL
     Indication: Bronchopulmonary dysplasia
     Dosage: 2.5 MICROGRAM, PRN
     Route: 050
     Dates: start: 20180626
  10. FAMOTIDINE [Concomitant]
     Active Substance: FAMOTIDINE
     Indication: Gastrooesophageal reflux disease
     Dosage: 10 MILLIGRAM, QD
     Route: 050
     Dates: start: 20181213
  11. SIMETHICONE (DIMETHICONE) [Concomitant]
     Active Substance: DIMETHICONE
     Indication: Flatulence
     Dosage: 40 MILLIGRAM, QID
     Route: 050
     Dates: start: 20190103
  12. ERGOCALCIFEROL [Concomitant]
     Active Substance: ERGOCALCIFEROL
     Indication: Vitamin supplementation
     Dosage: 1 MILLILITER, QD
     Route: 050
     Dates: start: 20190506

REACTIONS (2)
  - Device related sepsis [Recovered/Resolved]
  - Staphylococcal bacteraemia [Recovered/Resolved]

NARRATIVE: CASE EVENT DATE: 20210911
